FAERS Safety Report 21350164 (Version 1)
Quarter: 2022Q3

REPORT INFORMATION
  Report Type: Spontaneous
  Country: US (occurrence: US)
  Receive Date: 20220919
  Receipt Date: 20220919
  Transmission Date: 20221027
  Serious: Yes (Other)
  Sender: FDA-Public Use
  Company Number: US-AMGEN-USASP2022158470

PATIENT
  Sex: Male

DRUGS (1)
  1. XGEVA [Suspect]
     Active Substance: DENOSUMAB
     Indication: Prostate cancer
     Dosage: 120 MILLIGRAM, Q4WK
     Route: 058

REACTIONS (4)
  - Abscess jaw [Unknown]
  - Prostate cancer metastatic [Not Recovered/Not Resolved]
  - Off label use [Unknown]
  - Impaired healing [Unknown]
